FAERS Safety Report 10917485 (Version 1)
Quarter: 2015Q1

REPORT INFORMATION
  Report Type: Spontaneous
  Country: US (occurrence: None)
  Receive Date: 20150312
  Receipt Date: 20150312
  Transmission Date: 20150721
  Serious: No
  Sender: FDA-Public Use
  Company Number: None

PATIENT
  Age: 72 Year
  Sex: Male

DRUGS (5)
  1. TARCEVA [Suspect]
     Active Substance: ERLOTINIB HYDROCHLORIDE
     Indication: LUNG NEOPLASM MALIGNANT
     Route: 048
     Dates: start: 20150310, end: 20150311
  2. LEVETIRACETAM. [Concomitant]
     Active Substance: LEVETIRACETAM
  3. METOPROLOL [Concomitant]
     Active Substance: METOPROLOL
  4. DILTIAZEM [Concomitant]
     Active Substance: DILTIAZEM
  5. AMIODARONE [Concomitant]
     Active Substance: AMIODARONE

REACTIONS (1)
  - Diarrhoea [None]

NARRATIVE: CASE EVENT DATE: 20150311
